FAERS Safety Report 7027400-8 (Version None)
Quarter: 2010Q3

REPORT INFORMATION
  Report Type: 
  Country: None (occurrence: None)
  Receive Date: 20100929
  Receipt Date: 20100917
  Transmission Date: 20110219
  Serious: Yes (Hospitalization)
  Sender: FDA-Public Use
  Company Number: DSJ-2010-17160

PATIENT
  Age: 59 Year
  Sex: Female

DRUGS (6)
  1. BENICAR [Suspect]
     Indication: HYPERTENSION
     Dates: start: 20100701
  2. GLUCOSAMINE [Concomitant]
  3. METFORMIN [Concomitant]
  4. VITAMIN C (ASORBIC ACID) [Concomitant]
  5. VITAMIN B1 TAB [Concomitant]
  6. CHROMIUM CHLORIDE [Concomitant]

REACTIONS (1)
  - DIABETIC RETINOPATHY [None]
